FAERS Safety Report 11150052 (Version 2)
Quarter: 2015Q3

REPORT INFORMATION
  Report Type: Spontaneous
  Country: US (occurrence: US)
  Receive Date: 20150529
  Receipt Date: 20150708
  Transmission Date: 20151125
  Serious: No
  Sender: FDA-Public Use
  Company Number: US-PFIZER INC-2015169187

PATIENT
  Sex: Female

DRUGS (1)
  1. ADVIL ALLERGY SINUS [Suspect]
     Active Substance: CHLORPHENIRAMINE MALEATE\IBUPROFEN\PSEUDOEPHEDRINE HYDROCHLORIDE
     Dosage: UNK

REACTIONS (2)
  - Rhinorrhoea [Unknown]
  - Condition aggravated [Unknown]
